FAERS Safety Report 5884787-7 (Version None)
Quarter: 2008Q3

REPORT INFORMATION
  Report Type: 
  Country: None (occurrence: None)
  Receive Date: 20080915
  Receipt Date: 20080915
  Transmission Date: 20090109
  Serious: Yes (Hospitalization, Other)
  Sender: FDA-Public Use
  Company Number: None

PATIENT
  Age: 65 Year
  Sex: Female
  Weight: 57.6068 kg

DRUGS (1)
  1. DOXYCYCLINE HCL [Suspect]
     Indication: MALARIA PROPHYLAXIS
     Dosage: 1 DAILY PO
     Route: 048
     Dates: start: 20080624, end: 20080628

REACTIONS (17)
  - ABDOMINAL PAIN UPPER [None]
  - BODY TEMPERATURE DECREASED [None]
  - CANDIDIASIS [None]
  - COLLAPSE OF LUNG [None]
  - DIARRHOEA [None]
  - FALL [None]
  - HEAD DISCOMFORT [None]
  - HEADACHE [None]
  - MALAISE [None]
  - NAUSEA [None]
  - OROPHARYNGEAL PAIN [None]
  - RASH ERYTHEMATOUS [None]
  - RIB FRACTURE [None]
  - SYNCOPE [None]
  - THIRST [None]
  - URINARY TRACT INFECTION [None]
  - VULVOVAGINAL MYCOTIC INFECTION [None]
